FAERS Safety Report 6639241-1 (Version None)
Quarter: 2010Q1

REPORT INFORMATION
  Report Type: 
  Country: None (occurrence: None)
  Receive Date: 20100315
  Receipt Date: 20100225
  Transmission Date: 20100710
  Serious: Yes (Death)
  Sender: FDA-Public Use
  Company Number: 2010VX000116

PATIENT
  Age: 46 Year
  Sex: Female

DRUGS (4)
  1. BUTALBITAL [Suspect]
     Indication: DRUG USE FOR UNKNOWN INDICATION
  2. METHADONE HCL [Suspect]
     Indication: DRUG USE FOR UNKNOWN INDICATION
  3. ALPRAZOLAM [Suspect]
     Indication: DRUG USE FOR UNKNOWN INDICATION
  4. OXYCODONE AND ACETAMINOPHEN [Suspect]
     Indication: DRUG USE FOR UNKNOWN INDICATION

REACTIONS (7)
  - BRAIN DEATH [None]
  - COMPLETED SUICIDE [None]
  - HYPOTENSION [None]
  - ISCHAEMIC HEPATITIS [None]
  - OVERDOSE [None]
  - POISONING [None]
  - UNRESPONSIVE TO STIMULI [None]
